FAERS Safety Report 22178245 (Version 3)
Quarter: 2023Q2

REPORT INFORMATION
  Report Type: Report from Study
  Country: US (occurrence: US)
  Receive Date: 20230405
  Receipt Date: 20230518
  Transmission Date: 20230721
  Serious: Yes (Hospitalization, Other)
  Sender: FDA-Public Use
  Company Number: US-JAZZ PHARMACEUTICALS-2023-US-000148

PATIENT
  Age: 16 Year
  Sex: Male

DRUGS (4)
  1. XYWAV [Suspect]
     Active Substance: CALCIUM OXYBATE\MAGNESIUM OXYBATE\POTASSIUM OXYBATE\SODIUM OXYBATE
     Indication: Narcolepsy
     Dosage: 3.5 GRAM, BID
  2. XYWAV [Suspect]
     Active Substance: CALCIUM OXYBATE\MAGNESIUM OXYBATE\POTASSIUM OXYBATE\SODIUM OXYBATE
     Indication: Cataplexy
     Dosage: 3.75 GRAM, BID
  3. XYWAV [Suspect]
     Active Substance: CALCIUM OXYBATE\MAGNESIUM OXYBATE\POTASSIUM OXYBATE\SODIUM OXYBATE
     Indication: Somnolence
     Dosage: 4.5 GRAM, BID
  4. VYVANSE [Concomitant]
     Active Substance: LISDEXAMFETAMINE DIMESYLATE
     Indication: Product used for unknown indication
     Dosage: 0000
     Dates: start: 20230202

REACTIONS (19)
  - Suicide attempt [Unknown]
  - Suicidal ideation [Unknown]
  - Intentional product use issue [Unknown]
  - Apnoea [Unknown]
  - Influenza like illness [Unknown]
  - Negative thoughts [Unknown]
  - Tachyphrenia [Unknown]
  - Panic reaction [Unknown]
  - Crying [Unknown]
  - Influenza [Unknown]
  - Anxiety [Unknown]
  - Nausea [Unknown]
  - Nervousness [Unknown]
  - Headache [Unknown]
  - Nightmare [Unknown]
  - Somnambulism [Unknown]
  - Paraesthesia [Unknown]
  - Intentional dose omission [Unknown]
  - Product administration interrupted [Unknown]

NARRATIVE: CASE EVENT DATE: 20230319
